FAERS Safety Report 9167465 (Version 1)
Quarter: 2013Q1

REPORT INFORMATION
  Report Type: Spontaneous
  Country: FR (occurrence: None)
  Receive Date: 20130305
  Receipt Date: 20130305
  Transmission Date: 20140127
  Serious: Yes (Hospitalization)
  Sender: FDA-Public Use
  Company Number: FD201300644

PATIENT
  Age: 80 Year
  Sex: Female

DRUGS (7)
  1. PIPERACILLIN/TAZOBACTAM [Suspect]
     Indication: HERNIA REPAIR
     Dosage: 4 MG, 4 IN 1 D, INTRAVENOUS
     Route: 042
     Dates: start: 20120924, end: 20121004
  2. VANCOCINE [Suspect]
     Indication: PRODUCT USED FOR UNKNOWN INDICATION
     Dosage: 2 GM, 1 IN 1 D, INTRAVENOUS
     Route: 042
     Dates: start: 20120924, end: 20121004
  3. FLAGYL [Suspect]
     Indication: PRODUCT USED FOR UNKNOWN INDICATION
     Dosage: 0.5, 3 IN 1 D, ORAL
     Route: 048
  4. ERYTHROCINE [Suspect]
     Indication: PRODUCT USED FOR UNKNOWN INDICATION
     Dosage: 1 GM, 1 IN 1 D, INTRAVENOUS
     Route: 042
     Dates: start: 20121006, end: 20121008
  5. KARDEGIC (ACETYLSALICYLATE LYSINE) (ACETYLSALICYLATE LYSINE) [Concomitant]
  6. EUPANTOL (PANTOPRAZOLE) (PANTOPRAZOLE) [Concomitant]
  7. NEFOPAM MYLAN (NEPOPAM) (NEFOPAM) [Concomitant]

REACTIONS (9)
  - Diarrhoea [None]
  - Sepsis [None]
  - Mucosal inflammation [None]
  - Atrophic glossitis [None]
  - Hyperthermia [None]
  - Rash maculo-papular [None]
  - Eosinophilia [None]
  - Dermatitis bullous [None]
  - Rash generalised [None]
